FAERS Safety Report 10495165 (Version 1)
Quarter: 2014Q3

REPORT INFORMATION
  Report Type: Spontaneous
  Country: US (occurrence: None)
  Receive Date: 20140815
  Receipt Date: 20140815
  Transmission Date: 20150326
  Serious: Yes (Other)
  Sender: FDA-Public Use
  Company Number: ADR-2014-00288

PATIENT
  Sex: Female

DRUGS (1)
  1. BACLOFEN INTRATHECAL [Suspect]
     Active Substance: BACLOFEN
     Indication: MUSCLE SPASTICITY
     Dosage: BELOW 30 MCG/DAY

REACTIONS (8)
  - Cerebrospinal fluid leakage [None]
  - Pollakiuria [None]
  - Urinary tract infection [None]
  - Incision site pain [None]
  - Nausea [None]
  - Post lumbar puncture syndrome [None]
  - Rash [None]
  - Implant site extravasation [None]
